FAERS Safety Report 5057454-X (Version None)
Quarter: 2006Q3

REPORT INFORMATION
  Report Type: 
  Country: None (occurrence: None)
  Receive Date: 20060721
  Receipt Date: 20051010
  Transmission Date: 20061208
  Serious: No
  Sender: FDA-Public Use
  Company Number: US-GLAXOSMITHKLINE-A0577693A

PATIENT
  Age: 67 Year
  Sex: Female

DRUGS (6)
  1. AVANDIA [Suspect]
     Dosage: 4MG PER DAY
     Route: 048
     Dates: start: 20050315
  2. LOCHOL [Concomitant]
  3. TOPROL-XL [Concomitant]
  4. NITROGLYCERIN [Concomitant]
     Route: 062
  5. ZOCOR [Concomitant]
  6. PREMPRO [Concomitant]

REACTIONS (1)
  - JOINT SWELLING [None]
